FAERS Safety Report 5491460-6 (Version None)
Quarter: 2007Q4

REPORT INFORMATION
  Report Type: 
  Country: None (occurrence: None)
  Receive Date: 20071018
  Receipt Date: 20071005
  Transmission Date: 20080405
  Serious: Yes (Hospitalization)
  Sender: FDA-Public Use
  Company Number: 2007S1009372

PATIENT
  Age: 42 Year
  Sex: Male

DRUGS (3)
  1. VERAPAMIL HCL [Suspect]
     Indication: SUPRAVENTRICULAR TACHYCARDIA
  2. NIFEDIPINE [Suspect]
  3. DILTIAZEM HYDROCHLORIDE [Suspect]

REACTIONS (14)
  - ACUTE MYOCARDIAL INFARCTION [None]
  - ASTHENIA [None]
  - BRADYCARDIA [None]
  - BUNDLE BRANCH BLOCK LEFT [None]
  - CONFUSIONAL STATE [None]
  - CORONARY ARTERY DISEASE [None]
  - DIZZINESS [None]
  - HYPERHIDROSIS [None]
  - HYPOTENSION [None]
  - HYPOXIA [None]
  - METABOLIC ACIDOSIS [None]
  - OVERDOSE [None]
  - PULMONARY OEDEMA [None]
  - SELF-MEDICATION [None]
